FAERS Safety Report 5528521-9 (Version None)
Quarter: 2007Q4

REPORT INFORMATION
  Report Type: 
  Country: None (occurrence: None)
  Receive Date: 20071128
  Receipt Date: 20071115
  Transmission Date: 20080405
  Serious: Yes (Hospitalization)
  Sender: FDA-Public Use
  Company Number: FR-GENENTECH-248073

PATIENT
  Sex: Male

DRUGS (6)
  1. MABTHERA [Suspect]
     Indication: RHEUMATOID ARTHRITIS
     Dosage: 1 G, DAYS 1+15
     Route: 042
     Dates: start: 20070220
  2. METHOTREXATE [Suspect]
     Indication: RHEUMATOID ARTHRITIS
     Dosage: 6 TABLET, 1/WEEK
     Route: 048
     Dates: start: 20070206
  3. SPECIAFOLDINE [Concomitant]
     Indication: DRUG USE FOR UNKNOWN INDICATION
  4. CORTICOIDS [Concomitant]
     Indication: RHEUMATOID ARTHRITIS
     Dosage: 10-15 MG, UNK
  5. OMNIC [Concomitant]
     Indication: DRUG USE FOR UNKNOWN INDICATION
  6. MOBIC [Concomitant]
     Indication: DRUG USE FOR UNKNOWN INDICATION

REACTIONS (4)
  - AGRANULOCYTOSIS [None]
  - DRUG INTERACTION [None]
  - HEADACHE [None]
  - PHARYNGITIS STREPTOCOCCAL [None]
